FAERS Safety Report 6257651-1 (Version None)
Quarter: 2009Q3

REPORT INFORMATION
  Report Type: 
  Country: None (occurrence: None)
  Receive Date: 20090702
  Receipt Date: 20090622
  Transmission Date: 20100115
  Serious: Yes (Other)
  Sender: FDA-Public Use
  Company Number: GXKR2009DE06230

PATIENT
  Age: 41 Year
  Sex: Female
  Weight: 68 kg

DRUGS (1)
  1. DOXYCYCLINE [Suspect]
     Indication: URETHRITIS
     Dosage: 100 MG DAILY, ORAL
     Route: 048
     Dates: start: 20080512, end: 20080513

REACTIONS (5)
  - ANGIOEDEMA [None]
  - BRONCHOSPASM [None]
  - DIZZINESS [None]
  - RASH [None]
  - URTICARIA [None]
